FAERS Safety Report 17218013 (Version 1)
Quarter: 2019Q4

REPORT INFORMATION
  Report Type: Spontaneous
  Country: US (occurrence: US)
  Receive Date: 20191207
  Receipt Date: 20191207
  Transmission Date: 20200122
  Serious: No
  Sender: FDA-Public Use
  Company Number: None

PATIENT
  Sex: Female

DRUGS (1)
  1. XELJANZ [Suspect]
     Active Substance: TOFACITINIB CITRATE
     Indication: DRUG THERAPY
     Route: 048
     Dates: start: 20191107

REACTIONS (6)
  - Hypoaesthesia oral [None]
  - Muscle spasms [None]
  - Fatigue [None]
  - Myalgia [None]
  - Dizziness [None]
  - Abdominal pain upper [None]
